FAERS Safety Report 11593226 (Version 1)
Quarter: 2015Q4

REPORT INFORMATION
  Report Type: Spontaneous
  Country: None (occurrence: ES)
  Receive Date: 20151005
  Receipt Date: 20151005
  Transmission Date: 20160304
  Serious: Yes (Other)
  Sender: FDA-Public Use
  Company Number: ES-MEDAC PHARMA, INC.-1042553

PATIENT
  Age: 53 Year
  Sex: Male

DRUGS (6)
  1. METOJECT [Suspect]
     Active Substance: METHOTREXATE SODIUM
     Indication: PSORIATIC ARTHROPATHY
     Route: 058
     Dates: start: 201306
  2. ENBREL [Suspect]
     Active Substance: ETANERCEPT
     Route: 058
     Dates: start: 20140711
  3. DIAMICRON [Concomitant]
     Active Substance: GLICLAZIDE
  4. OMEPRAZOLE. [Concomitant]
     Active Substance: OMEPRAZOLE
  5. VELMETIA [Concomitant]
     Active Substance: METFORMIN\SITAGLIPTIN
  6. FENOFIBRATE. [Concomitant]
     Active Substance: FENOFIBRATE

REACTIONS (4)
  - Psoriatic arthropathy [Unknown]
  - Abasia [Recovered/Resolved]
  - Hepatotoxicity [Recovered/Resolved]
  - Pain in extremity [Recovering/Resolving]
